FAERS Safety Report 24455079 (Version 2)
Quarter: 2024Q4

REPORT INFORMATION
  Report Type: Report from Study
  Country: PE (occurrence: PE)
  Receive Date: 20241017
  Receipt Date: 20241018
  Transmission Date: 20250115
  Serious: No
  Sender: ROCHE
  Company Number: PE-ROCHE-3477808

PATIENT
  Age: 61 Year
  Sex: Male

DRUGS (1)
  1. MABTHERA [Suspect]
     Active Substance: RITUXIMAB
     Indication: Non-Hodgkin^s lymphoma
     Dosage: 1 (500 MG) + 2 (100 MG)
     Route: 042
     Dates: start: 20231201

REACTIONS (1)
  - Lymphocyte count decreased [Unknown]
